FAERS Safety Report 18156595 (Version 1)
Quarter: 2020Q3

REPORT INFORMATION
  Report Type: Spontaneous
  Country: IN (occurrence: IN)
  Receive Date: 20200817
  Receipt Date: 20200817
  Transmission Date: 20201103
  Serious: Yes (Hospitalization, Other)
  Sender: FDA-Public Use
  Company Number: IN-ACCORD-195680

PATIENT
  Age: 44 Year
  Sex: Male

DRUGS (1)
  1. CLOPIDOGREL [Suspect]
     Active Substance: CLOPIDOGREL BISULFATE
     Indication: ANGINA UNSTABLE

REACTIONS (3)
  - Thrombotic microangiopathy [Recovering/Resolving]
  - Haemolytic uraemic syndrome [Recovering/Resolving]
  - Renal failure [Recovering/Resolving]
